FAERS Safety Report 4594727-9 (Version None)
Quarter: 2005Q1

REPORT INFORMATION
  Report Type: 
  Country: None (occurrence: None)
  Receive Date: 20050301
  Receipt Date: 20050125
  Transmission Date: 20050727
  Serious: No
  Sender: FDA-Public Use
  Company Number: US-BRISTOL-MYERS SQUIBB COMPANY-12838264

PATIENT
  Age: 71 Year
  Sex: Female
  Weight: 85 kg

DRUGS (12)
  1. ERBITUX [Suspect]
     Indication: COLORECTAL CANCER METASTATIC
     Route: 042
     Dates: start: 20050118
  2. BENADRYL [Concomitant]
     Indication: PREMEDICATION
     Dates: start: 20050118
  3. DECADRON [Concomitant]
     Indication: PREMEDICATION
     Dates: start: 20050118
  4. KYTRIL [Concomitant]
     Indication: PREMEDICATION
     Dates: start: 20050118
  5. TAGAMET [Concomitant]
     Indication: PREMEDICATION
     Dates: start: 20050118
  6. CAMPTOSAR [Concomitant]
     Indication: COLORECTAL CANCER METASTATIC
  7. FLUOROURACIL [Concomitant]
     Indication: COLORECTAL CANCER METASTATIC
     Route: 040
  8. LEUCOVORIN [Concomitant]
     Indication: COLORECTAL CANCER METASTATIC
  9. ALBUTEROL [Concomitant]
  10. LORATADINE AND PSEUDOEPHEDRINE SULFATE [Concomitant]
  11. THEO-DUR [Concomitant]
  12. VOLMAX [Concomitant]

REACTIONS (3)
  - DIARRHOEA [None]
  - NAUSEA [None]
  - VOMITING [None]
